FAERS Safety Report 8839677 (Version 3)
Quarter: 2013Q1

REPORT INFORMATION
  Report Type: Spontaneous
  Country: HU (occurrence: HU)
  Receive Date: 20121015
  Receipt Date: 20130307
  Transmission Date: 20140127
  Serious: Yes (Hospitalization)
  Sender: FDA-Public Use
  Company Number: PHHY2012HU090412

PATIENT
  Age: 74 Year
  Sex: Male

DRUGS (2)
  1. ONBREZ [Suspect]
     Dosage: 150 UG, UNK
     Dates: start: 20120823, end: 20121004
  2. BETA BLOCKING AGENTS [Concomitant]
     Indication: ARRHYTHMIA

REACTIONS (1)
  - Arrhythmia [Unknown]
